FAERS Safety Report 12242157 (Version 1)
Quarter: 2016Q2

REPORT INFORMATION
  Report Type: Spontaneous
  Country: US (occurrence: US)
  Receive Date: 20160406
  Receipt Date: 20160406
  Transmission Date: 20160815
  Serious: Yes (Death, Hospitalization)
  Sender: FDA-Public Use
  Company Number: US-PFIZER INC-2016191949

PATIENT
  Age: 71 Year
  Sex: Male

DRUGS (1)
  1. VFEND [Suspect]
     Active Substance: VORICONAZOLE
     Dosage: UNK
     Route: 030
     Dates: start: 2015

REACTIONS (3)
  - Weight decreased [Unknown]
  - Leukaemia [Fatal]
  - Pneumonia fungal [Unknown]

NARRATIVE: CASE EVENT DATE: 201511
